FAERS Safety Report 6161846-5 (Version None)
Quarter: 2009Q2

REPORT INFORMATION
  Report Type: 
  Country: None (occurrence: None)
  Receive Date: 20090417
  Receipt Date: 20090417
  Transmission Date: 20091009
  Serious: No
  Sender: FDA-Public Use
  Company Number: None

PATIENT
  Age: 89 Year
  Sex: Female

DRUGS (2)
  1. NOVOLIN 70/30 [Suspect]
     Indication: DIABETES MELLITUS
     Dosage: SQ
     Route: 058
  2. GLIPIZIDE [Suspect]
     Indication: DIABETES MELLITUS
     Dosage: 1 ONCE DAILY PO
     Route: 048

REACTIONS (1)
  - HYPOGLYCAEMIA [None]
